FAERS Safety Report 22541449 (Version 1)
Quarter: 2023Q2

REPORT INFORMATION
  Report Type: Spontaneous
  Country: PT (occurrence: PT)
  Receive Date: 20230609
  Receipt Date: 20230609
  Transmission Date: 20230722
  Serious: Yes (Other)
  Sender: FDA-Public Use
  Company Number: PT-DSJP-DSE-2023-122847

PATIENT
  Age: 81 Year
  Sex: Male

DRUGS (2)
  1. EDOXABAN [Suspect]
     Active Substance: EDOXABAN
     Indication: Atrial fibrillation
     Dosage: UNK
     Route: 065
  2. ENOXAPARIN [Suspect]
     Active Substance: ENOXAPARIN
     Indication: Atrial fibrillation
     Dosage: UNK
     Route: 065

REACTIONS (10)
  - Aphasia [Unknown]
  - Hemiplegia [Unknown]
  - Aneurysm ruptured [Unknown]
  - Splenic embolism [Unknown]
  - Septic embolus [Unknown]
  - Renal embolism [Unknown]
  - Haemorrhage intracranial [Unknown]
  - Haematoma [Unknown]
  - Subarachnoid haemorrhage [Unknown]
  - Haemorrhagic diathesis [Unknown]
